FAERS Safety Report 22361068 (Version 2)
Quarter: 2023Q2

REPORT INFORMATION
  Report Type: Spontaneous
  Country: US (occurrence: US)
  Receive Date: 20230524
  Receipt Date: 20230621
  Transmission Date: 20230722
  Serious: No
  Sender: FDA-Public Use
  Company Number: US-PFIZER INC-PV202300091181

PATIENT
  Age: 75 Year
  Sex: Female

DRUGS (7)
  1. ERYTHROMYCIN [Suspect]
     Active Substance: ERYTHROMYCIN
     Dosage: UNK
  2. CARDURA [Suspect]
     Active Substance: DOXAZOSIN MESYLATE
     Dosage: UNK
  3. NORVASC [Suspect]
     Active Substance: AMLODIPINE BESYLATE
     Dosage: UNK
  4. CLONIDINE [Suspect]
     Active Substance: CLONIDINE
     Dosage: UNK
  5. CLARITHROMYCIN [Suspect]
     Active Substance: CLARITHROMYCIN
     Dosage: UNK
  6. PAMELOR [Suspect]
     Active Substance: NORTRIPTYLINE HYDROCHLORIDE
     Dosage: UNK
  7. POLYSPORIN [Suspect]
     Active Substance: BACITRACIN ZINC\POLYMYXIN B SULFATE
     Dosage: UNK

REACTIONS (1)
  - Drug hypersensitivity [Unknown]
